FAERS Safety Report 21447840 (Version 1)
Quarter: 2022Q4

REPORT INFORMATION
  Report Type: Spontaneous
  Country: DE (occurrence: DE)
  Receive Date: 20221012
  Receipt Date: 20221012
  Transmission Date: 20230113
  Serious: Yes (Hospitalization, Disabling)
  Sender: FDA-Public Use
  Company Number: DE-ADRED-07879-01

PATIENT
  Age: 80 Year
  Sex: Male

DRUGS (11)
  1. METFORMIN [Suspect]
     Active Substance: METFORMIN HYDROCHLORIDE
     Indication: Product used for unknown indication
     Dosage: 2000 MILLIGRAM DAILY; 1000 MG, 1-1-0-0
  2. INSULIN GLARGINE [Suspect]
     Active Substance: INSULIN GLARGINE
     Indication: Product used for unknown indication
     Dosage: 40 DOSAGE FORMS DAILY; 300 IU/3ML, 0-0-0-40, PRE-FILLED SYRINGES
  3. INSULIN ASPART [Suspect]
     Active Substance: INSULIN ASPART
     Indication: Product used for unknown indication
     Dosage: 52 DOSAGE FORMS DAILY; 300 IU/3ML, 26-26-0-0, PRE-FILLED SYRINGES
  4. NALOXONE HYDROCHLORIDE\TILIDINE HYDROCHLORIDE [Concomitant]
     Active Substance: NALOXONE HYDROCHLORIDE\TILIDINE HYDROCHLORIDE
     Indication: Product used for unknown indication
     Dosage: 2 DOSAGE FORMS DAILY; 4|50 MG, 1-0-1-0
  5. METAMIZOLE [Concomitant]
     Active Substance: METAMIZOLE
     Indication: Product used for unknown indication
     Dosage: 500 MG, 2-1-1-2
  6. SIMVASTATIN [Concomitant]
     Active Substance: SIMVASTATIN
     Indication: Product used for unknown indication
     Dosage: 20 MILLIGRAM DAILY; 20 MG, 0-0-1-0
  7. ASPIRIN [Concomitant]
     Active Substance: ASPIRIN
     Indication: Product used for unknown indication
     Dosage: 100 MILLIGRAM DAILY; 100 MG, 1-0-0-0, ACETYLSALICYLSAURE
  8. XIPAMIDE [Concomitant]
     Active Substance: XIPAMIDE
     Indication: Product used for unknown indication
     Dosage: 10 MILLIGRAM DAILY; 10 MG, 1-0-0-0
  9. METOPROLOL [Concomitant]
     Active Substance: METOPROLOL
     Indication: Product used for unknown indication
     Dosage: 95 MILLIGRAM DAILY; 47.5 MG, 1-0-1-0
  10. HYDROCHLOROTHIAZIDE\VALSARTAN [Concomitant]
     Active Substance: HYDROCHLOROTHIAZIDE\VALSARTAN
     Indication: Product used for unknown indication
     Dosage: 1 DOSAGE FORMS DAILY; 25|300 MG, 0-1-0-0
  11. ALLOPURINOL [Concomitant]
     Active Substance: ALLOPURINOL
     Indication: Product used for unknown indication
     Dosage: 300 MILLIGRAM DAILY; 300 MG, 0-1-0-0

REACTIONS (5)
  - Wound [Unknown]
  - Skin ulcer [Unknown]
  - Blood glucose increased [Unknown]
  - Therapeutic drug monitoring analysis incorrectly performed [Unknown]
  - Product monitoring error [Unknown]
